FAERS Safety Report 7122044-1 (Version None)
Quarter: 2010Q4

REPORT INFORMATION
  Report Type: 
  Country: None (occurrence: None)
  Receive Date: 20101124
  Receipt Date: 20101123
  Transmission Date: 20110411
  Serious: Yes (Death, Hospitalization)
  Sender: FDA-Public Use
  Company Number: B0681487A

PATIENT
  Sex: Male

DRUGS (1)
  1. ARIXTRA [Suspect]
     Indication: DEEP VEIN THROMBOSIS
     Dosage: 5MG PER DAY
     Route: 058
     Dates: start: 20100601, end: 20100827

REACTIONS (8)
  - BRADYCARDIA [None]
  - CARDIAC ARREST [None]
  - HAEMOGLOBIN DECREASED [None]
  - HYPOTENSION [None]
  - INCORRECT DRUG ADMINISTRATION DURATION [None]
  - PULSE PRESSURE DECREASED [None]
  - RECTAL HAEMORRHAGE [None]
  - SHOCK HAEMORRHAGIC [None]
